FAERS Safety Report 8014293-5 (Version None)
Quarter: 2011Q4

REPORT INFORMATION
  Report Type: 
  Country: None (occurrence: None)
  Receive Date: 20111229
  Receipt Date: 20111220
  Transmission Date: 20120403
  Serious: Yes (Hospitalization)
  Sender: FDA-Public Use
  Company Number: CH-GLAXOSMITHKLINE-B0772024A

PATIENT
  Age: 66 Year
  Sex: Female

DRUGS (4)
  1. ZYPREXA [Concomitant]
     Indication: DEPRESSION
     Dosage: 2.5MG PER DAY
     Route: 048
  2. LAMICTAL [Suspect]
     Indication: EPILEPSY
     Dosage: 200MG THREE TIMES PER DAY
     Route: 048
     Dates: start: 20090101
  3. CONVULEX [Suspect]
     Indication: EPILEPSY
     Dosage: 500MG PER DAY
     Route: 048
     Dates: start: 20090901, end: 20090929
  4. HALDOL [Concomitant]
     Indication: DEPRESSION
     Dosage: 1MG TWICE PER DAY
     Route: 048

REACTIONS (4)
  - DIZZINESS [None]
  - LABELLED DRUG-DRUG INTERACTION MEDICATION ERROR [None]
  - DRUG LEVEL INCREASED [None]
  - VOMITING [None]
